FAERS Safety Report 5386132-2 (Version None)
Quarter: 2007Q3

REPORT INFORMATION
  Report Type: 
  Country: None (occurrence: None)
  Receive Date: 20070711
  Receipt Date: 20070711
  Transmission Date: 20080115
  Serious: Yes (Hospitalization, Disabling)
  Sender: FDA-Public Use
  Company Number: None

PATIENT
  Sex: Male
  Weight: 88.4514 kg

DRUGS (7)
  1. LEVAQUIN [Suspect]
     Indication: BRONCHITIS
     Dosage: ONE TABLET ONCE A DAY ORAL
     Route: 048
     Dates: start: 20070326, end: 20070404
  2. AVELOX [Suspect]
     Indication: CHRONIC SINUSITIS
     Dosage: ONE TABLET ONCE A DAY ORAL
     Route: 048
     Dates: start: 20070426, end: 20070502
  3. ATIVAN [Concomitant]
  4. BUSIPRONE [Concomitant]
  5. XANAX [Concomitant]
  6. AVELOX [Concomitant]
  7. DOXYCYCLINE [Concomitant]

REACTIONS (12)
  - ANXIETY [None]
  - CEREBROVASCULAR ACCIDENT [None]
  - DISTURBANCE IN ATTENTION [None]
  - DIZZINESS [None]
  - HEADACHE [None]
  - HEARING IMPAIRED [None]
  - HYPOAESTHESIA [None]
  - MENTAL IMPAIRMENT [None]
  - MUSCULAR WEAKNESS [None]
  - NIGHT SWEATS [None]
  - TREMOR [None]
  - VISION BLURRED [None]
